FAERS Safety Report 24143076 (Version 2)
Quarter: 2024Q3

REPORT INFORMATION
  Report Type: Spontaneous
  Country: US (occurrence: US)
  Receive Date: 20240726
  Receipt Date: 20240918
  Transmission Date: 20241017
  Serious: Yes (Other)
  Sender: APELLIS PHARMACEUTICALS
  Company Number: US-APELLIS-2024-APL-0000527

PATIENT

DRUGS (8)
  1. SYFOVRE [Suspect]
     Active Substance: PEGCETACOPLAN
     Indication: Dry age-related macular degeneration
     Dosage: RIGHT EYE (OS), EVERY 6 WEEKS
     Route: 031
     Dates: start: 20231207, end: 20231207
  2. SYFOVRE [Suspect]
     Active Substance: PEGCETACOPLAN
     Dosage: LEFT EYE (OD), EVERY 6 WEEKS
     Route: 031
     Dates: start: 20240104
  3. SYFOVRE [Suspect]
     Active Substance: PEGCETACOPLAN
     Dosage: 15 MG
     Route: 031
     Dates: start: 20240509, end: 20240509
  4. SYFOVRE [Suspect]
     Active Substance: PEGCETACOPLAN
     Dosage: 15MG Q6WKS
     Route: 031
     Dates: start: 20240215
  5. SYFOVRE [Suspect]
     Active Substance: PEGCETACOPLAN
     Dosage: 15MG Q6WKS
     Route: 031
     Dates: start: 20240328
  6. TYLENOL [Concomitant]
     Active Substance: ACETAMINOPHEN
     Indication: Product used for unknown indication
     Dosage: PRN
  7. LUTEIN\MINERALS\VITAMINS\ZEAXANTHIN [Concomitant]
     Active Substance: LUTEIN\MINERALS\VITAMINS\ZEAXANTHIN
     Indication: Product used for unknown indication
     Dosage: 1 TABLET, OU (BOTH EYES)
  8. Artificial Tears [Concomitant]
     Indication: Product used for unknown indication
     Dosage: 1 GTT, OU (BOTH EYES).

REACTIONS (5)
  - Eye haemorrhage [Unknown]
  - Retinal vasculitis [Recovered/Resolved]
  - Retinal vasculitis [Recovered/Resolved]
  - Chorioretinitis [Recovered/Resolved]
  - Vitritis [Recovered/Resolved]

NARRATIVE: CASE EVENT DATE: 20240620
